FAERS Safety Report 26028582 (Version 1)
Quarter: 2025Q4

REPORT INFORMATION
  Report Type: Report from Study
  Country: GB (occurrence: GB)
  Receive Date: 20251111
  Receipt Date: 20251111
  Transmission Date: 20260117
  Serious: Yes (Other)
  Sender: ABBVIE
  Company Number: GB-ABBVIE-6542336

PATIENT
  Sex: Female

DRUGS (1)
  1. RINVOQ [Suspect]
     Active Substance: UPADACITINIB
     Indication: Ankylosing spondylitis
     Dosage: 28 TABLET 4 X 7 TABLETS?15MG
     Route: 048
     Dates: end: 2025

REACTIONS (1)
  - Pulmonary thrombosis [Unknown]
